FAERS Safety Report 10281678 (Version 2)
Quarter: 2014Q3

REPORT INFORMATION
  Report Type: Spontaneous
  Country: US (occurrence: US)
  Receive Date: 20140707
  Receipt Date: 20140818
  Transmission Date: 20150326
  Serious: No
  Sender: FDA-Public Use
  Company Number: US-PFIZER INC-2014185294

PATIENT
  Age: 64 Year
  Sex: Male
  Weight: 70.3 kg

DRUGS (1)
  1. ZYVOX [Suspect]
     Active Substance: LINEZOLID
     Indication: LOWER RESPIRATORY TRACT INFECTION BACTERIAL
     Dosage: 600 MG, 2X/DAY
     Dates: start: 2014, end: 2014

REACTIONS (2)
  - Hypoaesthesia [Not Recovered/Not Resolved]
  - Paraesthesia [Not Recovered/Not Resolved]

NARRATIVE: CASE EVENT DATE: 2014
